FAERS Safety Report 4902143-2 (Version None)
Quarter: 2006Q1

REPORT INFORMATION
  Report Type: 
  Country: None (occurrence: None)
  Receive Date: 20060206
  Receipt Date: 20051214
  Transmission Date: 20060701
  Serious: Yes (Death, Life-Threatening)
  Sender: FDA-Public Use
  Company Number: JP-SOLVAY-00305004208

PATIENT
  Age: 30236 Day
  Sex: Male
  Weight: 65 kg

DRUGS (28)
  1. DEPROMEL 25 [Suspect]
     Indication: DEPRESSION
     Dosage: DAILY DOSE: 12.5 MILLIGRAM(S)
     Route: 048
     Dates: start: 20051209, end: 20051212
  2. LASIX [Concomitant]
     Indication: RENAL FAILURE CHRONIC
     Dosage: DAILY DOSE: 60 MILLIGRAM(S)
     Route: 048
     Dates: end: 20051212
  3. LASIX [Concomitant]
     Dosage: DAILY DOSE: 20 MILLIGRAM(S)
     Route: 065
     Dates: start: 20051213, end: 20051216
  4. EXTRANEAL [Suspect]
     Indication: RENAL FAILURE
     Dosage: DAILY DOSE: 1 DOSAGE FORM
     Route: 042
     Dates: start: 20051102, end: 20051216
  5. DIGOSIN [Concomitant]
     Indication: RENAL FAILURE CHRONIC
     Dosage: 0.125 MG 3 TIMES/WEEK
     Route: 048
     Dates: end: 20051212
  6. DIGOSIN [Concomitant]
     Dosage: 0.125 MG 2 TIMES/WEEK
     Route: 065
     Dates: start: 20051213, end: 20051216
  7. NITOROL R [Concomitant]
     Indication: ANGINA PECTORIS
     Dosage: DAILY DOSE: 40 MILLIGRAM(S)
     Route: 048
     Dates: end: 20051212
  8. FLUITRAN [Suspect]
     Indication: RENAL FAILURE CHRONIC
     Dosage: DAILY DOSE: 2 MILLIGRAM(S)
     Route: 048
     Dates: end: 20051212
  9. FLIVAS [Concomitant]
     Indication: BENIGN PROSTATIC HYPERPLASIA
     Dosage: DAILY DOSE: 50 MILLIGRAM(S)
     Route: 048
     Dates: end: 20051206
  10. D-SORBITOL [Concomitant]
     Indication: CONSTIPATION
     Dosage: DAILY DOSE: 21 MILLILITRE(S)
     Route: 048
     Dates: start: 20051026, end: 20051212
  11. ALPRAZOLAM [Concomitant]
     Indication: DEPRESSIVE SYMPTOM
     Dosage: DAILY DOSE: .8 MILLIGRAM(S)
     Route: 048
     Dates: start: 20051209, end: 20051216
  12. RIMACTANE [Concomitant]
     Indication: TUBERCULOUS PLEURISY
     Dosage: DAILY DOSE: 450 MILLIGRAM(S)
     Route: 048
     Dates: start: 20051125, end: 20051216
  13. ISCOTIN [Concomitant]
     Indication: TUBERCULOUS PLEURISY
     Dosage: DAILY DOSE: 200 MILLIGRAM(S)
     Route: 048
     Dates: start: 20051125, end: 20051212
  14. ISCOTIN [Concomitant]
     Dosage: DAILY DOSE: 200 MILLIGRAM(S)
     Route: 065
     Dates: start: 20051213, end: 20051216
  15. NEUROVITAN [Concomitant]
     Indication: PROPHYLAXIS
     Dosage: DAILY DOSE: 3 DOSAGE FORM
     Route: 048
     Dates: start: 20051125, end: 20051212
  16. PYRAMIDE [Concomitant]
     Indication: TUBERCULOUS PLEURISY
     Dosage: 1.2 G 3 TIMES/WEEK
     Route: 048
     Dates: start: 20051125, end: 20051216
  17. STREPTOMYCIN SULFATE [Concomitant]
     Indication: TUBERCULOUS PLEURISY
     Dosage: 0.5 G 2 TIMES/WEEK
     Route: 065
     Dates: start: 20051125, end: 20051216
  18. EPOGIN INJ 9000, 12000 [Concomitant]
     Indication: NEPHROGENIC ANAEMIA
     Dosage: 12000 IU 2 TIMES/WEEK
     Route: 065
     Dates: end: 20051216
  19. SEDIEL [Concomitant]
     Indication: DEPRESSION
     Dosage: DAILY DOSE: 10 MILLIGRAM(S)
     Route: 048
     Dates: start: 20051105, end: 20051209
  20. MYSLEE [Concomitant]
     Indication: INSOMNIA
     Dosage: DAILY DOSE: 10 MILLIGRAM(S)
     Route: 048
     Dates: start: 20051128, end: 20051206
  21. SERENACE [Concomitant]
     Indication: INSOMNIA
     Dosage: DAILY DOSE: 2.5 MILLIGRAM(S)
     Route: 065
     Dates: start: 20051207, end: 20051208
  22. GOSHUYU-TO [Concomitant]
     Indication: HICCUPS
     Dosage: DAILY DOSE: 5 GRAM(S)
     Route: 048
     Dates: start: 20051208, end: 20051212
  23. PURSENNID [Concomitant]
     Indication: CONSTIPATION
     Dosage: DAILY DOSE: 12 MILLIGRAM(S)
     Route: 048
     Dates: start: 20051205, end: 20051210
  24. ENSURE LIQUID [Concomitant]
     Indication: MALNUTRITION
     Dosage: DAILY DOSE: 250 MILLILITRE(S)
     Route: 048
     Dates: start: 20051209, end: 20051216
  25. CRAVIT [Concomitant]
     Indication: PROSTATITIS
     Dosage: DAILY DOSE: 200 MILLIGRAM(S)
     Route: 048
     Dates: start: 20051202, end: 20051205
  26. CRAVIT [Concomitant]
     Dosage: DAILY DOSE: 100 MILLIGRAM(S)
     Route: 048
     Dates: start: 20051206, end: 20051211
  27. CERNILTON [Concomitant]
     Indication: PROSTATITIS
     Dosage: DAILY DOSE: 378 MILLIGRAM(S)
     Route: 048
     Dates: start: 20051124, end: 20051210
  28. BIRAMAIDO [Concomitant]
     Indication: TUBERCULOUS PLEURISY
     Dosage: DAILY DOSE:  UNKNOWN
     Route: 065
     Dates: start: 20051125, end: 20051216

REACTIONS (3)
  - CARDIAC FAILURE [None]
  - HYPONATRAEMIA [None]
  - SEPSIS [None]
